FAERS Safety Report 7244937-7 (Version None)
Quarter: 2011Q1

REPORT INFORMATION
  Report Type: 
  Country: None (occurrence: None)
  Receive Date: 20110126
  Receipt Date: 20110118
  Transmission Date: 20110831
  Serious: Yes (Other)
  Sender: FDA-Public Use
  Company Number: US-ELI_LILLY_AND_COMPANY-US201101004586

PATIENT
  Age: 79 Year
  Sex: Female

DRUGS (4)
  1. HUMALOG MIX 75/25 [Suspect]
     Indication: DIABETES MELLITUS
     Dosage: 75 U, EACH MORNING
     Dates: start: 20100101
  2. HUMALOG [Suspect]
     Dates: start: 20100101, end: 20100101
  3. INSULIN [Concomitant]
  4. HUMALOG MIX 75/25 [Suspect]
     Dosage: 8 U, EACH EVENING
     Dates: start: 20100101

REACTIONS (5)
  - DRUG DISPENSING ERROR [None]
  - LUNG DISORDER [None]
  - INCORRECT STORAGE OF DRUG [None]
  - INJECTION SITE HAEMATOMA [None]
  - BLOOD GLUCOSE DECREASED [None]
